FAERS Safety Report 16266904 (Version 1)
Quarter: 2019Q2

REPORT INFORMATION
  Report Type: Spontaneous
  Country: US (occurrence: US)
  Receive Date: 20190502
  Receipt Date: 20190502
  Transmission Date: 20190711
  Serious: No
  Sender: FDA-Public Use
  Company Number: US-BAUSCH-BL-2019-012280

PATIENT
  Age: 74 Year
  Sex: Female
  Weight: 55.84 kg

DRUGS (2)
  1. DEXAMETHASONE SODIUM PHOSPHATE. [Suspect]
     Active Substance: DEXAMETHASONE SODIUM PHOSPHATE
     Indication: POSTOPERATIVE CARE
     Dosage: IN THE RIGHT EYE
     Route: 047
     Dates: start: 20190415
  2. ALBUTEROL. [Concomitant]
     Active Substance: ALBUTEROL
     Indication: ASTHMA

REACTIONS (3)
  - Cystitis [Unknown]
  - Chromaturia [Unknown]
  - Dysuria [Unknown]

NARRATIVE: CASE EVENT DATE: 20190422
